FAERS Safety Report 24374745 (Version 4)
Quarter: 2024Q4

REPORT INFORMATION
  Report Type: Spontaneous
  Country: US (occurrence: US)
  Receive Date: 20240927
  Receipt Date: 20241018
  Transmission Date: 20250115
  Serious: Yes (Other)
  Sender: SANOFI AVENTIS
  Company Number: US-SA-2024SA277795

PATIENT
  Age: 69 Year
  Sex: Female

DRUGS (1)
  1. LANTUS SOLOSTAR [Suspect]
     Active Substance: INSULIN GLARGINE
     Indication: Type 2 diabetes mellitus
     Dosage: 35 U, QD
     Dates: start: 202402

REACTIONS (4)
  - Diabetes mellitus inadequate control [Unknown]
  - Incorrect dose administered by device [Unknown]
  - Product dose omission issue [Unknown]
  - Device breakage [Unknown]

NARRATIVE: CASE EVENT DATE: 20240101
